FAERS Safety Report 7137542-4 (Version None)
Quarter: 2010Q4

REPORT INFORMATION
  Report Type: 
  Country: None (occurrence: None)
  Receive Date: 20101206
  Receipt Date: 20101202
  Transmission Date: 20110411
  Serious: Yes (Other)
  Sender: FDA-Public Use
  Company Number: IT-BRISTOL-MYERS SQUIBB COMPANY-15390321

PATIENT
  Age: 72 Year
  Sex: Female

DRUGS (1)
  1. COUMADIN [Suspect]
     Dates: start: 20090929, end: 20100928

REACTIONS (2)
  - BLOOD PRESSURE INCREASED [None]
  - EPISTAXIS [None]
